FAERS Safety Report 4431445-1 (Version None)
Quarter: 2004Q3

REPORT INFORMATION
  Report Type: 
  Country: None (occurrence: None)
  Receive Date: 20040824
  Receipt Date: 20040802
  Transmission Date: 20050211
  Serious: Yes (Hospitalization)
  Sender: FDA-Public Use
  Company Number: 2004014467

PATIENT
  Age: 24 Year
  Sex: Female
  Weight: 90 kg

DRUGS (4)
  1. TAGONIS [Suspect]
     Dosage: 90TAB SINGLE DOSE
     Route: 048
  2. TRAMAL LONG [Suspect]
     Dosage: 10TAB SINGLE DOSE
     Route: 048
  3. CHLORALHYDRAT [Suspect]
     Dosage: 26TAB SINGLE DOSE
     Route: 048
  4. SEROQUEL [Suspect]
     Dosage: 10TAB SINGLE DOSE
     Route: 048

REACTIONS (5)
  - DYSKINESIA [None]
  - INTENTIONAL OVERDOSE [None]
  - SOMNOLENCE [None]
  - SUICIDE ATTEMPT [None]
  - VOMITING [None]
